FAERS Safety Report 26071017 (Version 2)
Quarter: 2025Q4

REPORT INFORMATION
  Report Type: Spontaneous
  Country: EU (occurrence: EU)
  Receive Date: 20251120
  Receipt Date: 20251125
  Transmission Date: 20260118
  Serious: Yes (Death, Other)
  Sender: TEVA
  Company Number: EU-TEVA-VS-3393100

PATIENT
  Sex: Female

DRUGS (7)
  1. VINCRISTINE [Suspect]
     Active Substance: VINCRISTINE
     Indication: Soft tissue sarcoma
     Dosage: FIRST LINE THERAPY
     Route: 065
  2. IFOSFAMIDE [Suspect]
     Active Substance: IFOSFAMIDE
     Indication: Soft tissue sarcoma
     Dosage: FIRST LINE THERAPY
     Route: 065
  3. CARBOPLATIN [Suspect]
     Active Substance: CARBOPLATIN
     Indication: Soft tissue sarcoma
     Dosage: SECOND LINE THERAPY
     Route: 065
  4. DACTINOMYCIN [Suspect]
     Active Substance: DACTINOMYCIN
     Indication: Soft tissue sarcoma
     Dosage: FIRST LINE THERAPY
     Route: 065
  5. ETOPOSIDE [Suspect]
     Active Substance: ETOPOSIDE
     Indication: Soft tissue sarcoma
     Dosage: SECOND LINE THERAPY
     Route: 065
  6. IRINOTECAN [Suspect]
     Active Substance: IRINOTECAN
     Indication: Soft tissue sarcoma
     Dosage: SECOND LINE THERAPY
     Route: 065
  7. TEMOZOLOMIDE [Suspect]
     Active Substance: TEMOZOLOMIDE
     Indication: Soft tissue sarcoma
     Dosage: SECOND LINE THERAPY
     Route: 065

REACTIONS (3)
  - Drug ineffective [Fatal]
  - Off label use [Unknown]
  - Drug ineffective for unapproved indication [Unknown]
